FAERS Safety Report 6494275-5 (Version None)
Quarter: 2009Q4

REPORT INFORMATION
  Report Type: 
  Country: None (occurrence: None)
  Receive Date: 20091214
  Receipt Date: 20090202
  Transmission Date: 20100525
  Serious: No
  Sender: FDA-Public Use
  Company Number: US-BRISTOL-MYERS SQUIBB COMPANY-14490387

PATIENT
  Age: 56 Year
  Sex: Female
  Weight: 82 kg

DRUGS (6)
  1. ABILIFY [Suspect]
     Indication: MAJOR DEPRESSION
  2. CYMBALTA [Concomitant]
  3. METOPROLOL [Concomitant]
  4. NIFEDIAC [Concomitant]
  5. HYDROCHLOROTHIAZIDE [Concomitant]
  6. HYDROCODONE [Concomitant]

REACTIONS (1)
  - MOTOR DYSFUNCTION [None]
